FAERS Safety Report 6143067-5 (Version None)
Quarter: 2009Q2

REPORT INFORMATION
  Report Type: 
  Country: None (occurrence: None)
  Receive Date: 20090403
  Receipt Date: 20090326
  Transmission Date: 20091009
  Serious: Yes (Hospitalization)
  Sender: FDA-Public Use
  Company Number: US-AMGEN-US340563

PATIENT

DRUGS (1)
  1. PANITUMUMAB [Suspect]
     Indication: NEOPLASM MALIGNANT
     Dates: start: 20081024

REACTIONS (2)
  - DYSPNOEA [None]
  - PYREXIA [None]
